FAERS Safety Report 6445011-X (Version None)
Quarter: 2009Q4

REPORT INFORMATION
  Report Type: 
  Country: None (occurrence: None)
  Receive Date: 20091118
  Receipt Date: 20091112
  Transmission Date: 20100525
  Serious: Yes (Hospitalization)
  Sender: FDA-Public Use
  Company Number: FR-TEVA-213849ISR

PATIENT
  Sex: Male

DRUGS (2)
  1. CARBOPLATIN [Suspect]
     Indication: MESOTHELIOMA
     Route: 042
     Dates: start: 20090716, end: 20091007
  2. PEMETREXED [Interacting]
     Indication: MESOTHELIOMA
     Route: 042
     Dates: start: 20090716, end: 20091007

REACTIONS (2)
  - COLITIS [None]
  - RECTAL HAEMORRHAGE [None]
